FAERS Safety Report 8164043-7 (Version None)
Quarter: 2012Q1

REPORT INFORMATION
  Report Type: 
  Country: None (occurrence: None)
  Receive Date: 20120224
  Receipt Date: 20120215
  Transmission Date: 20120608
  Serious: Yes (Hospitalization, Other)
  Sender: FDA-Public Use
  Company Number: PHEH2010US03463

PATIENT
  Sex: Female

DRUGS (47)
  1. OPIUM ^DAK^ [Suspect]
  2. AUGMENTIN '125' [Concomitant]
  3. COLACE [Concomitant]
     Dosage: 100 MG, BID
     Route: 048
  4. LIDOCAINE [Concomitant]
     Dosage: 1 DF, Q12H
     Route: 061
  5. DIPHENHYDRAMINE HCL [Concomitant]
  6. GLUCOPHAGE [Concomitant]
     Dosage: 2 G, QD
  7. DOXYCYCLINE [Concomitant]
     Dosage: 100 MG, BID
     Route: 048
  8. ZESTRIL [Concomitant]
  9. VANCOMYCIN [Concomitant]
  10. VICODIN [Concomitant]
  11. TRIAMTERENE AND HYDROCHLOROTHIAZIDE [Concomitant]
  12. ASPIRIN [Concomitant]
     Dosage: 81 MG, UNK
     Route: 048
  13. ATIVAN [Concomitant]
     Dosage: 2 DF, QHS
     Route: 048
  14. DEMEROL [Concomitant]
  15. SPIRIVA [Concomitant]
  16. AVELOX [Concomitant]
     Dosage: 400 MG, QD
     Route: 042
  17. METHADONE HCL [Concomitant]
     Dosage: 20 MG, TID
  18. LOPERAMIDE HCL [Concomitant]
     Dosage: 2 DF, UNK
     Route: 048
  19. SYMLIN [Concomitant]
     Dosage: 45 UG, BEFORE EACH MEAL
  20. ALBUTEROL [Concomitant]
  21. REGLAN [Concomitant]
     Dosage: 5 MG, Q6H
     Route: 048
  22. LANTUS [Concomitant]
     Dosage: 70 U, QD
     Route: 058
  23. METFORMIN HCL [Concomitant]
     Dosage: 1000 MG, BID
     Route: 048
  24. MOXIFLOXACIN [Concomitant]
     Dosage: 400 MG, QD
     Route: 042
  25. CHANTIX [Concomitant]
     Dosage: 1 MG, BID
     Route: 048
  26. ZOMETA [Suspect]
     Indication: OSTEOPENIA
     Dates: start: 20060101
  27. PROTONIX [Concomitant]
  28. LISINOPRIL [Concomitant]
     Dosage: 5 MG, BID
     Route: 048
  29. BENADRYL [Concomitant]
     Dosage: 25 MG, Q6H, PRN
     Route: 048
  30. NARCAN [Concomitant]
     Dosage: 0.04 MG, UNK
     Route: 042
  31. NEURONTIN [Concomitant]
  32. FLOVENT [Concomitant]
  33. COMBIVENT [Concomitant]
  34. UNASYN [Concomitant]
     Dosage: 3 G, Q6H
     Route: 042
  35. SYMBICORT [Concomitant]
     Dosage: 2 PUFFS, BID
  36. PERCOCET [Concomitant]
  37. WELLBUTRIN [Concomitant]
  38. ASACOL [Concomitant]
  39. HUMULIN R [Concomitant]
  40. ZOCOR [Concomitant]
     Dosage: 10 MG, QD
  41. PENTASA [Concomitant]
  42. TARCEVA [Concomitant]
  43. DILAUDID [Concomitant]
  44. SIMVASTATIN [Concomitant]
  45. NICOTINE [Concomitant]
     Dosage: 21 MG, QD
  46. ANTICOAGULANTS [Concomitant]
  47. PROVENTIL [Concomitant]
     Dosage: 2 PUFFS, Q4H

REACTIONS (80)
  - ACTIVITIES OF DAILY LIVING IMPAIRED [None]
  - LUNG NEOPLASM [None]
  - PLEURAL EFFUSION [None]
  - ATELECTASIS [None]
  - INTERVERTEBRAL DISC DISORDER [None]
  - DIARRHOEA [None]
  - EXPOSED BONE IN JAW [None]
  - EXOPHTHALMOS [None]
  - CLAUSTROPHOBIA [None]
  - ADENOCARCINOMA [None]
  - OSTEOMYELITIS [None]
  - DRUG WITHDRAWAL SYNDROME [None]
  - IMPAIRED GASTRIC EMPTYING [None]
  - VOMITING [None]
  - DEFORMITY [None]
  - GINGIVITIS [None]
  - DIARRHOEA HAEMORRHAGIC [None]
  - CHRONIC OBSTRUCTIVE PULMONARY DISEASE [None]
  - STREPTOCOCCAL INFECTION [None]
  - OSTEOPOROSIS [None]
  - RENAL FAILURE CHRONIC [None]
  - SWELLING FACE [None]
  - DYSPNOEA [None]
  - HALLUCINATION [None]
  - DIZZINESS [None]
  - FATIGUE [None]
  - DYSLIPIDAEMIA [None]
  - NAUSEA [None]
  - HEPATIC STEATOSIS [None]
  - PURULENT DISCHARGE [None]
  - ADRENAL DISORDER [None]
  - HIATUS HERNIA [None]
  - OSTEITIS [None]
  - PROTEINURIA [None]
  - PALPITATIONS [None]
  - BONE CYST [None]
  - MUSCLE STRAIN [None]
  - COLITIS ULCERATIVE [None]
  - ALOPECIA [None]
  - HYPERTENSION [None]
  - OSTEONECROSIS OF JAW [None]
  - QUALITY OF LIFE DECREASED [None]
  - BONE LOSS [None]
  - INTERVERTEBRAL DISC SPACE NARROWING [None]
  - VISION BLURRED [None]
  - LEUKOCYTOSIS [None]
  - ANAEMIA [None]
  - OEDEMA [None]
  - PAIN [None]
  - ANXIETY [None]
  - DEEP VEIN THROMBOSIS [None]
  - SLEEP APNOEA SYNDROME [None]
  - TOOTH LOSS [None]
  - TACHYCARDIA [None]
  - PRIMARY SEQUESTRUM [None]
  - GAIT DISTURBANCE [None]
  - GASTROOESOPHAGEAL REFLUX DISEASE [None]
  - OESOPHAGITIS [None]
  - DUODENITIS [None]
  - CHRONIC SINUSITIS [None]
  - OBSTRUCTIVE AIRWAYS DISORDER [None]
  - DIVERTICULITIS [None]
  - PERIODONTITIS [None]
  - INTERVERTEBRAL DISC PROTRUSION [None]
  - HAEMATURIA [None]
  - OSTEOLYSIS [None]
  - SUBCUTANEOUS ABSCESS [None]
  - OVERWEIGHT [None]
  - INSOMNIA [None]
  - MASTICATION DISORDER [None]
  - EMOTIONAL DISTRESS [None]
  - LYMPHADENOPATHY [None]
  - CARDIAC FAILURE CONGESTIVE [None]
  - EMPHYSEMA [None]
  - ILEUS [None]
  - INTERVERTEBRAL DISC DEGENERATION [None]
  - CROHN'S DISEASE [None]
  - CHEST PAIN [None]
  - METATARSUS PRIMUS VARUS [None]
  - ARTHRALGIA [None]
